FAERS Safety Report 20894426 (Version 1)
Quarter: 2022Q2

REPORT INFORMATION
  Report Type: Spontaneous
  Country: US (occurrence: None)
  Receive Date: 20220527
  Receipt Date: 20220527
  Transmission Date: 20220721
  Serious: No
  Sender: FDA-Public Use
  Company Number: None

PATIENT
  Sex: Female

DRUGS (1)
  1. PLEGRIDY [Suspect]
     Active Substance: PEGINTERFERON BETA-1A
     Indication: Multiple sclerosis
     Dosage: OTHER QUANTITY : 125MCG;?OTHER FREQUENCY : EVERY 14 DAYS ;?
     Route: 058
     Dates: start: 202202

REACTIONS (2)
  - Injection site infection [None]
  - Rubber sensitivity [None]
